FAERS Safety Report 23367194 (Version 2)
Quarter: 2024Q1

REPORT INFORMATION
  Report Type: Spontaneous
  Country: US (occurrence: US)
  Receive Date: 20240104
  Receipt Date: 20240214
  Transmission Date: 20240410
  Serious: No
  Sender: FDA-Public Use
  Company Number: US-JNJFOC-20231255858

PATIENT
  Age: 70 Year
  Sex: Female

DRUGS (15)
  1. WOMENS ROGAINE UNSCENTED [Suspect]
     Active Substance: MINOXIDIL
     Indication: Alopecia
     Dosage: 1/2 CAPFUL, 1X/DAY PER INSTRUCTIONS
     Route: 061
     Dates: start: 202311, end: 20231217
  2. ATORVASTATIN [Concomitant]
     Active Substance: ATORVASTATIN
     Indication: Product used for unknown indication
     Dosage: 20MG 1 IN PM
     Route: 065
  3. FAMOTIDINE [Concomitant]
     Active Substance: FAMOTIDINE
     Indication: Product used for unknown indication
     Dosage: 20 MG 2 IN PM
     Route: 065
  4. LATANOPROST [Concomitant]
     Active Substance: LATANOPROST
     Indication: Product used for unknown indication
     Dosage: 0.005% 2X/WEEK RIGHT EYE
     Route: 065
  5. METFORMIN [Concomitant]
     Active Substance: METFORMIN HYDROCHLORIDE
     Indication: Product used for unknown indication
     Dosage: 500 MG TIME RELEASE
     Route: 065
  6. VITAMIN B12 [Concomitant]
     Active Substance: CYANOCOBALAMIN
     Indication: Product used for unknown indication
     Dosage: 1000 MCG
     Route: 065
  7. BERBERINE [Concomitant]
     Active Substance: BERBERINE
     Indication: Product used for unknown indication
     Dosage: 1500 MG, 1/DAY (3/DAY PREFERABLE WITH MEAL)
     Route: 065
  8. CO-Q10-CHLORELLA [Concomitant]
     Indication: Product used for unknown indication
     Dosage: 1 DAY, (1CAP/DAY WITH 8OZ WATER)
     Route: 065
  9. HERBALS\PLANTAGO OVATA SEED COAT [Concomitant]
     Active Substance: HERBALS\PLANTAGO OVATA SEED COAT
     Indication: Product used for unknown indication
     Route: 065
  10. HYALURONIC ACID PLUS MSM [Concomitant]
     Indication: Product used for unknown indication
     Route: 065
  11. OMEGA 3 FLAX SEED OIL [Concomitant]
     Indication: Product used for unknown indication
     Route: 065
  12. OSTEO BI-FLEX [CHONDROITIN SULFATE;GLUCOSAMINE HYDROCHLORIDE] [Concomitant]
     Indication: Product used for unknown indication
     Route: 065
  13. PROBIOTICS NOS [Concomitant]
     Active Substance: PROBIOTICS NOS
     Indication: Product used for unknown indication
     Dosage: 1/DAY
     Route: 065
  14. DIETARY SUPPLEMENT\RESVERATROL [Concomitant]
     Active Substance: DIETARY SUPPLEMENT\RESVERATROL
     Indication: Product used for unknown indication
     Dosage: 1/DAY, (1/DAY, 20-30 MIN BEFORE A MEAL)
     Route: 065
  15. HERBALS\TURMERIC [Concomitant]
     Active Substance: HERBALS\TURMERIC
     Indication: Product used for unknown indication
     Dosage: 1/DAY, (1/DAY, 20-30 MIN BEFORE MEAL)
     Route: 065

REACTIONS (2)
  - Alopecia [Unknown]
  - Hair disorder [Unknown]

NARRATIVE: CASE EVENT DATE: 20231201
